FAERS Safety Report 4834298-2 (Version None)
Quarter: 2005Q4

REPORT INFORMATION
  Report Type: 
  Country: None (occurrence: None)
  Receive Date: 20051122
  Receipt Date: 20051115
  Transmission Date: 20060501
  Serious: Yes (Other)
  Sender: FDA-Public Use
  Company Number: US-ROCHE-425185

PATIENT
  Age: 43 Year
  Sex: Male
  Weight: 77.6 kg

DRUGS (3)
  1. PEGASYS [Suspect]
     Indication: HEPATITIS C
     Route: 058
     Dates: start: 20051028
  2. COPEGUS [Suspect]
     Indication: HEPATITIS C
     Route: 048
     Dates: start: 20051028
  3. EFFEXOR [Concomitant]
     Indication: PROPHYLAXIS
     Route: 048
     Dates: start: 20051028

REACTIONS (10)
  - ANGER [None]
  - DECREASED APPETITE [None]
  - DEHYDRATION [None]
  - DEPRESSION [None]
  - FATIGUE [None]
  - FEELING GUILTY [None]
  - INSOMNIA [None]
  - MIGRAINE [None]
  - PSORIASIS [None]
  - WEIGHT DECREASED [None]
